FAERS Safety Report 7071710-5 (Version None)
Quarter: 2010Q4

REPORT INFORMATION
  Report Type: 
  Country: None (occurrence: None)
  Receive Date: 20101029
  Receipt Date: 20091012
  Transmission Date: 20110411
  Serious: No
  Sender: FDA-Public Use
  Company Number: A0811394A

PATIENT
  Age: 75 Year
  Sex: Male

DRUGS (11)
  1. ADVAIR DISKUS 100/50 [Suspect]
     Indication: CHRONIC OBSTRUCTIVE PULMONARY DISEASE
     Dosage: 1PUFF TWICE PER DAY
     Route: 055
     Dates: start: 20090922
  2. ALBUTEROL [Concomitant]
  3. SIMVASTATIN [Concomitant]
  4. ASPIRIN [Concomitant]
  5. DIOVAN [Concomitant]
  6. HYTRIN [Concomitant]
  7. ZAPONEX [Concomitant]
  8. CARVEDILOL [Concomitant]
  9. UNKNOWN MEDICATION [Concomitant]
     Indication: GOUT
  10. AMLODIPINE [Concomitant]
  11. ZOLPIDEM [Concomitant]

REACTIONS (2)
  - DRUG INEFFECTIVE [None]
  - DYSPNOEA [None]
